FAERS Safety Report 7132277 (Version 4)
Quarter: 2014Q2

REPORT INFORMATION
  Report Type: Spontaneous
  Country: US (occurrence: US)
  Receive Date: 20090928
  Receipt Date: 20140630
  Transmission Date: 20141212
  Serious: Yes (Hospitalization, Other)
  Sender: FDA-Public Use
  Company Number: US-BIOGENIDEC-2009BI030405

PATIENT
  Age: 46 Year
  Sex: Female

DRUGS (1)
  1. AVONEX [Suspect]
     Indication: MULTIPLE SCLEROSIS
     Route: 030
     Dates: start: 20000222

REACTIONS (12)
  - Myocardial infarction [Not Recovered/Not Resolved]
  - Coronary artery occlusion [Unknown]
  - Hangover [Unknown]
  - Optic neuritis [Unknown]
  - Depression [Unknown]
  - Drug effect decreased [Unknown]
  - Influenza like illness [Unknown]
  - Feeling hot [Unknown]
  - Muscular weakness [Unknown]
  - Fatigue [Unknown]
  - Asthenia [Not Recovered/Not Resolved]
  - Malaise [Not Recovered/Not Resolved]
